FAERS Safety Report 13521907 (Version 1)
Quarter: 2017Q2

REPORT INFORMATION
  Report Type: Spontaneous
  Country: CN (occurrence: CN)
  Receive Date: 20170508
  Receipt Date: 20170508
  Transmission Date: 20170830
  Serious: Yes (Death, Other)
  Sender: FDA-Public Use
  Company Number: CN-CELGENEUS-CHN-20170408986

PATIENT

DRUGS (4)
  1. ABRAXANE [Suspect]
     Active Substance: PACLITAXEL
     Indication: NON-SMALL CELL LUNG CANCER
     Dosage: 60 MILLIGRAM/SQ. METER
     Route: 041
  2. ABRAXANE [Suspect]
     Active Substance: PACLITAXEL
     Dosage: 260 MILLIGRAM/SQ. METER
     Route: 041
  3. CARBOPLATIN. [Concomitant]
     Active Substance: CARBOPLATIN
     Indication: NON-SMALL CELL LUNG CANCER
     Dosage: AUC 2
     Route: 041
  4. CARBOPLATIN. [Concomitant]
     Active Substance: CARBOPLATIN
     Dosage: AUC 6
     Route: 041

REACTIONS (4)
  - Radiation pneumonitis [Unknown]
  - Radiation oesophagitis [Unknown]
  - Death [Fatal]
  - Disease progression [Unknown]
